FAERS Safety Report 5075293-0 (Version None)
Quarter: 2006Q3

REPORT INFORMATION
  Report Type: 
  Country: None (occurrence: None)
  Receive Date: 20060809
  Receipt Date: 20060206
  Transmission Date: 20061208
  Serious: No
  Sender: FDA-Public Use
  Company Number: US-AMGEN-KDL168613

PATIENT
  Sex: Female
  Weight: 100.8 kg

DRUGS (8)
  1. PROCRIT [Suspect]
     Indication: PRE-EXISTING DISEASE
     Route: 058
     Dates: start: 20040101, end: 20060110
  2. RIBAVIRIN [Concomitant]
     Dates: start: 20051028, end: 20060110
  3. INFERGEN [Concomitant]
     Route: 058
     Dates: start: 20051028, end: 20060110
  4. RISPERDAL [Concomitant]
  5. TRILEPTAL [Concomitant]
  6. TOPAMAX [Concomitant]
  7. LAMICTAL [Concomitant]
  8. TRAZODONE HCL [Concomitant]

REACTIONS (1)
  - RASH [None]
